FAERS Safety Report 18122558 (Version 1)
Quarter: 2020Q3

REPORT INFORMATION
  Report Type: Spontaneous
  Country: US (occurrence: US)
  Receive Date: 20200806
  Receipt Date: 20200806
  Transmission Date: 20201103
  Serious: Yes (Other)
  Sender: FDA-Public Use
  Company Number: None

PATIENT
  Age: 80 Year
  Sex: Female
  Weight: 59 kg

DRUGS (6)
  1. REMDESIVIR. [Suspect]
     Active Substance: REMDESIVIR
     Indication: COVID-19 PNEUMONIA
     Route: 042
     Dates: start: 20200722, end: 20200726
  2. DEXAMETHASONE (DECADRON) 4MG/ML INJ 4 MG [Concomitant]
  3. IPRATROPIUM (ATROVENT HFA) ORAL INHALER 2 PUFF [Concomitant]
  4. ENOXAPARIN (LOVENOX) INJ 40 MG [Concomitant]
  5. ALBUTEROL (PROAIR HFA, PROVENTIL HFA, VENTOLIN HFA) 108 (90 BASE) MCG/ [Concomitant]
  6. BUDESONIDE/FORMOTEROL (SYMBICORT) 80MCG/4.5MCG ORAL INHALER [Concomitant]

REACTIONS (2)
  - Alanine aminotransferase increased [None]
  - Aspartate aminotransferase increased [None]

NARRATIVE: CASE EVENT DATE: 20200727
